FAERS Safety Report 17005758 (Version 6)
Quarter: 2020Q3

REPORT INFORMATION
  Report Type: Report from Study
  Country: IL (occurrence: IL)
  Receive Date: 20191107
  Receipt Date: 20200621
  Transmission Date: 20201105
  Serious: Yes (Death, Hospitalization, Disabling, Other)
  Sender: FDA-Public Use
  Company Number: NVSC2019IL023243

PATIENT
  Age: 81 Year
  Sex: Female
  Weight: 50 kg

DRUGS (5)
  1. INC280 [Suspect]
     Active Substance: CAPMATINIB
     Dosage: 400 MG
     Route: 048
     Dates: start: 20191115, end: 20200210
  2. ZOLEDRONIC ACID [Suspect]
     Active Substance: ZOLEDRONIC ACID
     Indication: PRODUCT USED FOR UNKNOWN INDICATION
     Dosage: UNK
     Route: 065
     Dates: start: 20181106
  3. INC280 [Suspect]
     Active Substance: CAPMATINIB
     Indication: NON-SMALL CELL LUNG CANCER
     Dosage: 800 MG
     Route: 048
     Dates: start: 20190902, end: 20191027
  4. INC280 [Suspect]
     Active Substance: CAPMATINIB
     Dosage: 400 MG
     Route: 048
     Dates: start: 20191029
  5. INC280 [Suspect]
     Active Substance: CAPMATINIB
     Dosage: 800 MG
     Route: 048
     Dates: start: 20191109

REACTIONS (8)
  - Oedema peripheral [Not Recovered/Not Resolved]
  - Ascites [Unknown]
  - Metastases to bone [Unknown]
  - Blood creatinine increased [Unknown]
  - Product dispensing error [Recovered/Resolved]
  - Sepsis [Fatal]
  - Pleural effusion [Unknown]
  - Chronic kidney disease [Recovered/Resolved]

NARRATIVE: CASE EVENT DATE: 201811
